FAERS Safety Report 4510285-9 (Version None)
Quarter: 2004Q4

REPORT INFORMATION
  Report Type: 
  Country: None (occurrence: None)
  Receive Date: 20041122
  Receipt Date: 20041108
  Transmission Date: 20050328
  Serious: Yes (Other)
  Sender: FDA-Public Use
  Company Number: HQWYE325909NOV04

PATIENT
  Age: 61 Year
  Sex: Male
  Weight: 90.7 kg

DRUGS (10)
  1. PROTONIX [Suspect]
     Indication: PEPTIC ULCER
     Dosage: 8 MG  1X1 HR, ^BOLUS^  INTRAVENOUS
     Route: 042
     Dates: start: 20041029, end: 20041029
  2. PROTONIX [Suspect]
     Indication: PEPTIC ULCER
     Dosage: 8 MG  1X1 HR, ^BOLUS^  INTRAVENOUS
     Route: 042
     Dates: start: 20041029, end: 20041102
  3. COGER (CARVEDILOL) [Concomitant]
  4. DIPYRIDAMOLE [Concomitant]
  5. SUCRALFATE [Concomitant]
  6. PLASMA-LYTE (ELECTROLYTES NOS) [Concomitant]
  7. METOCLOPRAMIDE [Concomitant]
  8. MORPHINE SULFATE [Concomitant]
  9. NTG (GLYCERYL TRINITRATE) [Concomitant]
  10. LISINOPRIL [Concomitant]

REACTIONS (3)
  - THROMBOPHLEBITIS [None]
  - THROMBOSIS [None]
  - VASCULAR OCCLUSION [None]
